FAERS Safety Report 9068584 (Version 2)
Quarter: 2013Q1

REPORT INFORMATION
  Report Type: Spontaneous
  Country: CH (occurrence: CH)
  Receive Date: 20130128
  Receipt Date: 20130208
  Transmission Date: 20140127
  Serious: Yes (Other)
  Sender: FDA-Public Use
  Company Number: CH-PFIZER INC-2013033579

PATIENT
  Age: 67 Year
  Sex: Male
  Weight: 80 kg

DRUGS (8)
  1. ATORVASTATIN PFIZER [Suspect]
     Indication: TRANSIENT ISCHAEMIC ATTACK
     Dosage: 20 MG, 1X/DAY
     Route: 048
     Dates: start: 201205
  2. TRAVATAN [Concomitant]
     Indication: GLAUCOMA
     Dosage: UNK
     Dates: start: 2011
  3. AZOPT [Concomitant]
     Indication: GLAUCOMA
     Dosage: UNK
     Dates: start: 2012
  4. GLAUPAX [Concomitant]
     Indication: GLAUCOMA
     Dosage: 0.5 DF, 2X/DAY
     Route: 048
     Dates: start: 201207
  5. ASPIRIN CARDIO [Concomitant]
     Indication: TRANSIENT ISCHAEMIC ATTACK
     Dosage: UNK
     Route: 048
     Dates: start: 201205
  6. LOSARTAN [Concomitant]
     Indication: HYPERTENSION
     Dosage: 12.5 MG, 1X/DAY
     Route: 048
  7. CONDROSULF [Concomitant]
     Indication: CHONDROPATHY
     Dosage: 800 MG, 1X/DAY
     Route: 048
  8. GLUCOSAMINE SULFATE [Concomitant]
     Indication: CHONDROPATHY
     Dosage: 1 DF, 1X/DAY

REACTIONS (4)
  - Tenosynovitis stenosans [Not Recovered/Not Resolved]
  - Myalgia [Unknown]
  - Drug ineffective [Unknown]
  - Drug ineffective [Unknown]
